FAERS Safety Report 23494889 (Version 2)
Quarter: 2024Q1

REPORT INFORMATION
  Report Type: Spontaneous
  Country: US (occurrence: US)
  Receive Date: 20240207
  Receipt Date: 20240207
  Transmission Date: 20240410
  Serious: Yes (Other)
  Sender: FDA-Public Use
  Company Number: US-AMGEN-USASP2024020336

PATIENT
  Sex: Female

DRUGS (4)
  1. SENSIPAR [Suspect]
     Active Substance: CINACALCET HYDROCHLORIDE
     Indication: Blood parathyroid hormone increased
     Dosage: 30 MILLIGRAM, QD
     Route: 048
  2. SENSIPAR [Suspect]
     Active Substance: CINACALCET HYDROCHLORIDE
     Indication: Chronic kidney disease
     Dosage: 60 MILLIGRAM, QD, DOSE INCREASED
     Route: 048
     Dates: end: 202401
  3. SENSIPAR [Suspect]
     Active Substance: CINACALCET HYDROCHLORIDE
     Dosage: 30 MILLIGRAM, QD, DOSE DECREASED
     Route: 048
     Dates: start: 202401
  4. PROLIA [Suspect]
     Active Substance: DENOSUMAB
     Indication: Bone disorder
     Dosage: UNK
     Route: 065

REACTIONS (4)
  - Pancreatitis [Unknown]
  - Blood parathyroid hormone increased [Unknown]
  - Abdominal pain upper [Recovered/Resolved]
  - Off label use [Unknown]
